FAERS Safety Report 8011436-4 (Version None)
Quarter: 2011Q4

REPORT INFORMATION
  Report Type: 
  Country: None (occurrence: None)
  Receive Date: 20111228
  Receipt Date: 20111219
  Transmission Date: 20120403
  Serious: Yes (Hospitalization, Other)
  Sender: FDA-Public Use
  Company Number: US-BAYER-2011-123053

PATIENT
  Age: 27 Year
  Sex: Female
  Weight: 102.4 kg

DRUGS (5)
  1. MULTI-VITAMIN [Concomitant]
     Dosage: UNK UNK, QD
     Route: 048
  2. YAZ [Suspect]
     Indication: CONTRACEPTION
     Dosage: UNK
     Dates: start: 20020101, end: 20090101
  3. YASMIN [Suspect]
  4. YAZ [Suspect]
     Indication: PREMENSTRUAL SYNDROME
  5. LISINOPRIL [Concomitant]
     Indication: HYPERTENSION
     Dosage: UNK
     Dates: start: 20070101, end: 20110101

REACTIONS (3)
  - CHOLELITHIASIS [None]
  - ABDOMINAL PAIN [None]
  - CHOLECYSTITIS CHRONIC [None]
